FAERS Safety Report 5320199-2 (Version None)
Quarter: 2007Q2

REPORT INFORMATION
  Report Type: 
  Country: None (occurrence: None)
  Receive Date: 20070509
  Receipt Date: 20070507
  Transmission Date: 20071010
  Serious: Yes (Other)
  Sender: FDA-Public Use
  Company Number: A0648966A

PATIENT
  Age: 53 Year
  Sex: Female
  Weight: 122.7 kg

DRUGS (8)
  1. AVANDAMET [Suspect]
     Indication: DRUG USE FOR UNKNOWN INDICATION
     Dosage: 1TAB TWICE PER DAY
     Route: 048
     Dates: start: 20061201, end: 20070401
  2. SULFONYLUREA [Concomitant]
  3. JANUVIA [Concomitant]
  4. GLUCOTROL XL [Concomitant]
     Dosage: 10U TWICE PER DAY
  5. HYDROCHLOROTHIAZIDE [Concomitant]
     Dosage: 12.5MG PER DAY
  6. SIMVASTATIN [Concomitant]
     Dosage: 40MG PER DAY
  7. TENORMIN [Concomitant]
     Dosage: 50MG PER DAY
  8. ASPIRIN [Concomitant]
     Dosage: 81MG PER DAY

REACTIONS (7)
  - FULL BLOOD COUNT ABNORMAL [None]
  - HAEMATOCRIT ABNORMAL [None]
  - HAEMOGLOBIN ABNORMAL [None]
  - IRON BINDING CAPACITY TOTAL ABNORMAL [None]
  - IRON DEFICIENCY ANAEMIA [None]
  - RED BLOOD CELL COUNT ABNORMAL [None]
  - WEIGHT INCREASED [None]
